FAERS Safety Report 25943947 (Version 2)
Quarter: 2025Q4

REPORT INFORMATION
  Report Type: Spontaneous
  Country: AU (occurrence: AU)
  Receive Date: 20251021
  Receipt Date: 20251104
  Transmission Date: 20260117
  Serious: Yes (Hospitalization, Other)
  Sender: MDD OPERATIONS
  Company Number: AU-MDD US Operations-MDD202510-004274

PATIENT
  Sex: Male

DRUGS (4)
  1. APOMORPHINE HYDROCHLORIDE [Suspect]
     Active Substance: APOMORPHINE HYDROCHLORIDE
     Indication: Parkinson^s disease
     Dosage: DEVICE SERIAL NUMBER: AH 8755.24, STRENGTH: 50MG/10ML VIA CRONO PAR 4 PUMP, SLOW TITRATION INFUSION,
     Route: 058
     Dates: start: 20250925
  2. APOMORPHINE HYDROCHLORIDE [Suspect]
     Active Substance: APOMORPHINE HYDROCHLORIDE
     Dosage: REDUCED THE FLOW RATE FOR F1= 1MG PER HOUR
     Route: 058
     Dates: start: 202510, end: 20251006
  3. DOMPERIDONE [Concomitant]
     Active Substance: DOMPERIDONE
     Indication: Prophylaxis
     Dosage: 10MG THREE TIMES A DAY (TID)
     Dates: end: 20251006
  4. BENSERAZIDE HYDROCHLORIDE\LEVODOPA [Concomitant]
     Active Substance: BENSERAZIDE HYDROCHLORIDE\LEVODOPA
     Indication: Prophylaxis
     Dosage: 100/25MG (8:30AM/10:30AM/12:30/2:30PM/4:30PM/6:30PM/20:30PM)

REACTIONS (9)
  - Nervousness [Unknown]
  - Tremor [Unknown]
  - Gait disturbance [Unknown]
  - Loss of consciousness [Recovered/Resolved]
  - Heart rate irregular [Recovered/Resolved]
  - Syncope [Recovered/Resolved]
  - Dizziness [Recovered/Resolved]
  - Infusion site erythema [Recovered/Resolved]
  - Infusion site reaction [Recovered/Resolved]

NARRATIVE: CASE EVENT DATE: 20251001
